FAERS Safety Report 9690302 (Version 1)
Quarter: 2013Q4

REPORT INFORMATION
  Report Type: Spontaneous
  Country: US (occurrence: None)
  Receive Date: 20131114
  Receipt Date: 20131114
  Transmission Date: 20140711
  Serious: No
  Sender: FDA-Public Use
  Company Number: None

PATIENT
  Age: 53 Year
  Sex: Female

DRUGS (1)
  1. HUMIRA [Suspect]
     Indication: RHEUMATOID ARTHRITIS
     Dosage: 40MG, QOW, SQ
     Dates: start: 20130827

REACTIONS (4)
  - Influenza like illness [None]
  - Oropharyngeal pain [None]
  - Unevaluable event [None]
  - Nausea [None]
